FAERS Safety Report 6544032-6 (Version None)
Quarter: 2010Q1

REPORT INFORMATION
  Report Type: 
  Country: None (occurrence: None)
  Receive Date: 20100120
  Receipt Date: 20100106
  Transmission Date: 20100710
  Serious: Yes (Hospitalization)
  Sender: FDA-Public Use
  Company Number: FR-MYLANLABS-2010S1000204

PATIENT
  Age: 86 Year
  Sex: Female

DRUGS (7)
  1. BUFLOMEDIL [Suspect]
     Dates: start: 20080323
  2. ZOLPIDEM [Suspect]
  3. PARACETAMOL [Suspect]
  4. ALDACTAZINE [Suspect]
     Dates: start: 20080329
  5. ARICEPT [Suspect]
     Dates: start: 20080329
  6. ALDACTAZINE [Suspect]
  7. VITABACT [Suspect]

REACTIONS (2)
  - BRADYCARDIA [None]
  - HYPOTENSION [None]
